FAERS Safety Report 17693417 (Version 1)
Quarter: 2020Q2

REPORT INFORMATION
  Report Type: Spontaneous
  Country: US (occurrence: US)
  Receive Date: 20200420
  Receipt Date: 20200420
  Transmission Date: 20200714
  Serious: No
  Sender: FDA-Public Use
  Company Number: None

PATIENT
  Age: 71 Year
  Sex: Male

DRUGS (1)
  1. DOXEPIN (DOXEPIN HCL 10MG CAP) [Suspect]
     Active Substance: DOXEPIN HYDROCHLORIDE
     Dates: start: 20200128, end: 20200206

REACTIONS (1)
  - Dyspnoea [None]

NARRATIVE: CASE EVENT DATE: 20200206
